FAERS Safety Report 5504027-8 (Version None)
Quarter: 2007Q4

REPORT INFORMATION
  Report Type: 
  Country: None (occurrence: None)
  Receive Date: 20071101
  Receipt Date: 20071023
  Transmission Date: 20080405
  Serious: Yes (Death)
  Sender: FDA-Public Use
  Company Number: FR-ROCHE-527334

PATIENT
  Age: 93 Year
  Sex: Female

DRUGS (13)
  1. ROCEPHIN [Suspect]
     Indication: DRUG USE FOR UNKNOWN INDICATION
     Dosage: FORM REPORTED AS INJECTABLE SOLUTION.
     Route: 042
     Dates: start: 20070709
  2. KARDEGIC [Suspect]
     Indication: DRUG USE FOR UNKNOWN INDICATION
     Dosage: DOSE REPORTED AS 1 DOSE QD.
     Route: 048
     Dates: start: 20070705
  3. INIPOMP [Suspect]
     Indication: DRUG USE FOR UNKNOWN INDICATION
     Route: 048
     Dates: start: 20070705
  4. TAVANIC [Suspect]
     Indication: DRUG USE FOR UNKNOWN INDICATION
     Route: 048
     Dates: start: 20070704, end: 20070705
  5. TAVANIC [Suspect]
     Route: 048
     Dates: start: 20070705, end: 20070713
  6. LASIX [Suspect]
     Indication: DRUG USE FOR UNKNOWN INDICATION
     Route: 048
     Dates: start: 20070629, end: 20070704
  7. LASIX [Suspect]
     Dosage: DOSE INCREASED.
     Route: 048
     Dates: start: 20070704
  8. ZAMUDOL [Suspect]
     Indication: DRUG USE FOR UNKNOWN INDICATION
     Route: 048
     Dates: start: 20070628, end: 20070713
  9. TANAKAN [Concomitant]
  10. CHONDROSULF [Concomitant]
  11. DAFALGAN [Concomitant]
  12. CACIT D3 [Concomitant]
     Dosage: DOSE REPORTED AS 2 DOSES PER DAY.
  13. SEROPRAM [Concomitant]

REACTIONS (1)
  - RENAL FAILURE ACUTE [None]
